FAERS Safety Report 16071965 (Version 1)
Quarter: 2019Q1

REPORT INFORMATION
  Report Type: Spontaneous
  Country: IE (occurrence: IE)
  Receive Date: 20190314
  Receipt Date: 20190314
  Transmission Date: 20190418
  Serious: Yes (Life-Threatening)
  Sender: FDA-Public Use
  Company Number: IE-ROCHE-2275315

PATIENT
  Sex: Male

DRUGS (3)
  1. LORLATINIB [Concomitant]
     Active Substance: LORLATINIB
     Route: 065
     Dates: start: 201809
  2. AVASTIN [Suspect]
     Active Substance: BEVACIZUMAB
     Indication: METASTASES TO EYE
     Dosage: 4 ML 4
     Route: 065
  3. ALECENSA [Suspect]
     Active Substance: ALECTINIB HYDROCHLORIDE
     Indication: LUNG NEOPLASM MALIGNANT
     Route: 065
     Dates: start: 20180505, end: 201809

REACTIONS (2)
  - Off label use [Unknown]
  - Bone disorder [Unknown]
